FAERS Safety Report 11174445 (Version 1)
Quarter: 2015Q2

REPORT INFORMATION
  Report Type: Spontaneous
  Country: GB (occurrence: None)
  Receive Date: 20150605
  Receipt Date: 20150605
  Transmission Date: 20150821
  Serious: Yes (Life-Threatening)
  Sender: FDA-Public Use
  Company Number: FK201502488

PATIENT
  Age: 58 Year
  Sex: Female
  Weight: 93.5 kg

DRUGS (9)
  1. PROPOFOL (MANUFACTURER UNKNOWN) (PROPOFOL) (PROPOFOL) [Suspect]
     Active Substance: PROPOFOL
     Indication: INDUCTION OF ANAESTHESIA
     Dosage: INTRAVENOUS (NOT OTHERWISE SPECIFIEC)
     Route: 042
     Dates: start: 20150512, end: 20150512
  2. ZOMORPH (MORPHINE SULFATE) [Concomitant]
     Active Substance: MORPHINE SULFATE
  3. AMITIPTYLINE (AMITRIPTYLINE HYDRICGKIRIDE) [Concomitant]
  4. ATRACURIUM (ATRACURIUM) (ATRACURIUM) [Suspect]
     Active Substance: ATRACURIUM
     Indication: INDUCTION OF ANAESTHESIA
     Dates: start: 20150512, end: 20150512
  5. FENTANYL (FENTANYL) (FENTANYL) [Suspect]
     Active Substance: FENTANYL
     Indication: PRODUCT USED FOR UNKNOWN INDICATION
     Dates: start: 20150512, end: 20150512
  6. ORAMORPH (MORPHINE SULFATE PENTAHYDRATE) [Concomitant]
  7. BUSCOPAN (HYOSCINE BUTYLBROMIDE) (HYOSCINE BUTYLBROMIDE) [Concomitant]
     Active Substance: BUTYLSCOPOLAMINE
  8. LEVOTHYROXINE [Concomitant]
     Active Substance: LEVOTHYROXINE
  9. LISINOPRIL. [Concomitant]
     Active Substance: LISINOPRIL

REACTIONS (2)
  - Circulatory collapse [None]
  - Bronchospasm [None]

NARRATIVE: CASE EVENT DATE: 20150512
